FAERS Safety Report 23525793 (Version 1)
Quarter: 2024Q1

REPORT INFORMATION
  Report Type: Spontaneous
  Country: FR (occurrence: FR)
  Receive Date: 20240215
  Receipt Date: 20240215
  Transmission Date: 20240410
  Serious: Yes (Hospitalization, Other)
  Sender: FDA-Public Use
  Company Number: FR-AFSSAPS-DJ2024000187

PATIENT
  Age: 70 Year
  Sex: Female
  Weight: 75 kg

DRUGS (5)
  1. DOCETAXEL [Suspect]
     Active Substance: DOCETAXEL\DOCETAXEL ANHYDROUS
     Indication: Invasive ductal breast carcinoma
     Dosage: 75 MILLIGRAM/SQ. METER, CYCLICAL, 3 CYCLES
     Route: 042
     Dates: start: 2015, end: 2015
  2. FLUOROURACIL [Suspect]
     Active Substance: FLUOROURACIL
     Indication: Invasive ductal breast carcinoma
     Dosage: 500 MILLIGRAM/SQ. METER, CYCLICAL
     Route: 042
     Dates: start: 2015, end: 2015
  3. EPIRUBICIN [Suspect]
     Active Substance: EPIRUBICIN
     Indication: Invasive ductal breast carcinoma
     Dosage: 100 MILLIGRAM/SQ. METER, CYCLICAL,3 CYCLES
     Route: 042
     Dates: start: 2015, end: 2015
  4. ARIMIDEX [Suspect]
     Active Substance: ANASTROZOLE
     Indication: Invasive ductal breast carcinoma
     Dosage: 1 MILLIGRAM, ONCE A DAY
     Route: 048
     Dates: start: 201603
  5. CYCLOPHOSPHAMIDE [Suspect]
     Active Substance: CYCLOPHOSPHAMIDE
     Indication: Invasive ductal breast carcinoma
     Dosage: 500 MILLIGRAM/SQ. METER, CYCLICAL, 3 CYCLES
     Route: 042
     Dates: start: 2015, end: 2015

REACTIONS (1)
  - Pulmonary hypertension [Not Recovered/Not Resolved]

NARRATIVE: CASE EVENT DATE: 20231127
